FAERS Safety Report 23445783 (Version 5)
Quarter: 2024Q4

REPORT INFORMATION
  Report Type: Spontaneous
  Country: US (occurrence: US)
  Receive Date: 20240126
  Receipt Date: 20241127
  Transmission Date: 20250115
  Serious: Yes (Hospitalization, Other)
  Sender: BRISTOL-MYERS SQUIBB COMPANY
  Company Number: US-BRISTOL-MYERS SQUIBB COMPANY-2024-011831

PATIENT
  Age: 85 Year
  Sex: Male

DRUGS (5)
  1. LENALIDOMIDE [Suspect]
     Active Substance: LENALIDOMIDE
     Indication: Plasma cell myeloma in remission
     Dosage: TAKE 1 CAPSULE (10MG TOTAL) BY MOUTH EVERY DAY FOR 14 DAYS FOLLOWED BY A 7 DAY REST PERIOD
     Route: 048
     Dates: start: 20220512
  2. LENALIDOMIDE [Suspect]
     Active Substance: LENALIDOMIDE
     Indication: Plasma cell myeloma
     Dosage: TAKE1 CAPSULE BY MOUTH EVERY DAY FOR 14 DAYS FOLLOWED BY 7 DAY REST PERIOD
     Route: 048
  3. LENALIDOMIDE [Suspect]
     Active Substance: LENALIDOMIDE
     Dosage: TAKE 1 CAPSULE (10MG TOTAL) BY MOUTH EVERY DAY FOR 14 DAYS FOLLOWED BY 7 DAY REST PERIOD
     Route: 048
  4. LENALIDOMIDE [Suspect]
     Active Substance: LENALIDOMIDE
     Dosage: TAKE 1 CAPSULE (10MG TOTAL) BY MOUTH EVERY DAY FOR 14 DAYS FOLLOWED BY 7 DAY REST PERIOD
     Route: 048
  5. ENTRESTO [Concomitant]
     Active Substance: SACUBITRIL\VALSARTAN

REACTIONS (16)
  - Carpal tunnel syndrome [Recovering/Resolving]
  - Malaise [Recovering/Resolving]
  - Off label use [Unknown]
  - Fatigue [Recovering/Resolving]
  - Discomfort [Unknown]
  - Appetite disorder [Unknown]
  - Weight decreased [Unknown]
  - Product dose omission in error [Unknown]
  - Back pain [Unknown]
  - Product dose omission issue [Unknown]
  - Chest pain [Unknown]
  - Cardiac disorder [Recovering/Resolving]
  - Gout [Not Recovered/Not Resolved]
  - Paraesthesia [Not Recovered/Not Resolved]
  - Back disorder [Unknown]
  - Amnesia [Not Recovered/Not Resolved]
